FAERS Safety Report 13488109 (Version 1)
Quarter: 2017Q2

REPORT INFORMATION
  Report Type: Spontaneous
  Country: US (occurrence: US)
  Receive Date: 20170426
  Receipt Date: 20170426
  Transmission Date: 20170830
  Serious: No
  Sender: FDA-Public Use
  Company Number: US-ALKERMES INC.-ALK-2016-002630

PATIENT
  Sex: Female

DRUGS (1)
  1. VIVITROL [Suspect]
     Active Substance: NALTREXONE
     Indication: DRUG USE DISORDER
     Dosage: 380 MG, QMO
     Route: 030

REACTIONS (8)
  - Dizziness [Unknown]
  - Drug ineffective [Unknown]
  - Muscle spasms [Unknown]
  - Tremor [Unknown]
  - Abdominal pain upper [Unknown]
  - Paraesthesia [Unknown]
  - Malaise [Unknown]
  - Anxiety [Unknown]
